FAERS Safety Report 5592206-3 (Version None)
Quarter: 2007Q4

REPORT INFORMATION
  Report Type: 
  Country: None (occurrence: None)
  Receive Date: 20071217
  Receipt Date: 20071108
  Transmission Date: 20080405
  Serious: No
  Sender: FDA-Public Use
  Company Number: BDI-010668

PATIENT
  Age: 58 Year
  Sex: Female
  Weight: 64 kg

DRUGS (2)
  1. MULTIHANCE [Suspect]
     Indication: NUCLEAR MAGNETIC RESONANCE IMAGING BRAIN
     Dosage: 16 ML ONCE IV
     Route: 042
     Dates: start: 20071115, end: 20071115
  2. MULTIHANCE [Suspect]
     Indication: VERTIGO
     Dosage: 16 ML ONCE IV
     Route: 042
     Dates: start: 20071115, end: 20071115

REACTIONS (2)
  - RASH [None]
  - URTICARIA [None]
